FAERS Safety Report 5015479-4 (Version None)
Quarter: 2006Q2

REPORT INFORMATION
  Report Type: 
  Country: None (occurrence: None)
  Receive Date: 20060530
  Receipt Date: 20060530
  Transmission Date: 20061013
  Serious: Yes (Other)
  Sender: FDA-Public Use
  Company Number: None

PATIENT
  Age: 74 Year
  Sex: Male
  Weight: 88.9 kg

DRUGS (13)
  1. FORADIL [Suspect]
  2. HYDRALAZINE HCL [Concomitant]
  3. MOXIFLOXACIN HCL [Concomitant]
  4. FUROSEMIDE [Concomitant]
  5. RIOREOPIUM INHL [Concomitant]
  6. AZIRHEOMYXIN [Concomitant]
  7. CEFUROXINE AXETIL [Concomitant]
  8. OMEPRAZOLE [Concomitant]
  9. PREDNISONE [Concomitant]
  10. ENALAPRIL MALEATE [Concomitant]
  11. METOPROLOL TARTRATE [Concomitant]
  12. SYNTHROID [Concomitant]
  13. HYDROXYZINE HCL [Concomitant]

REACTIONS (1)
  - BRONCHOSPASM [None]
